FAERS Safety Report 9709294 (Version 1)
Quarter: 2013Q4

REPORT INFORMATION
  Report Type: Report from Study
  Country: KR (occurrence: KR)
  Receive Date: 20131125
  Receipt Date: 20131125
  Transmission Date: 20140711
  Serious: Yes (Death)
  Sender: FDA-Public Use
  Company Number: KR-ASTRAZENECA-2013SE86015

PATIENT
  Age: 56 Year
  Sex: Female

DRUGS (5)
  1. PROPOFOL [Suspect]
     Route: 042
  2. LIDOCAINE [Suspect]
  3. DIAZEPAM [Suspect]
  4. KETAMINE [Suspect]
  5. FLUOXETINE [Suspect]

REACTIONS (2)
  - Drug abuse [Fatal]
  - Toxicity to various agents [Fatal]
